FAERS Safety Report 17080610 (Version 1)
Quarter: 2019Q4

REPORT INFORMATION
  Report Type: Report from Study
  Country: NL (occurrence: NL)
  Receive Date: 20191127
  Receipt Date: 20191127
  Transmission Date: 20200122
  Serious: Yes (Other)
  Sender: FDA-Public Use
  Company Number: NL-TEVA-2019-NL-1141868

PATIENT
  Age: 61 Year
  Sex: Male

DRUGS (6)
  1. BARICITINIB [Concomitant]
     Active Substance: BARICITINIB
     Dosage: 4 MILLIGRAM DAILY; 4MG, 1X/D
     Dates: start: 20180417
  2. FOLIUMZUUR [Concomitant]
     Active Substance: FOLIC ACID
     Dosage: 5MG, 1X/W
     Dates: start: 20180514, end: 20190703
  3. CALCI CHEW D3 [Concomitant]
     Active Substance: CALCIUM CARBONATE\CHOLECALCIFEROL
     Dosage: 1 DOSAGE FORMS DAILY; 1000/800MG/IE, 1X/D
     Dates: start: 20180514, end: 20190703
  4. PREDNISOLON [Concomitant]
     Active Substance: PREDNISOLONE
     Dosage: 20 MILLIGRAM DAILY; 5MG, 2X/D
     Dates: start: 20180417, end: 20190703
  5. METHOTREXATE (METHOTREXATE SODIUM) [Suspect]
     Active Substance: METHOTREXATE SODIUM
     Indication: RHEUMATOID ARTHRITIS
     Dosage: 25MG, 1X/W
     Dates: start: 20180514, end: 20190703
  6. HYDROXYCHLOROQUINE [Concomitant]
     Active Substance: HYDROXYCHLOROQUINE
     Dosage: 200 MILLIGRAM DAILY; 200MG, 1X/D
     Dates: start: 20180514, end: 20190703

REACTIONS (1)
  - Respiratory tract infection [Recovered/Resolved]

NARRATIVE: CASE EVENT DATE: 20190703
